FAERS Safety Report 5818564-X (Version None)
Quarter: 2008Q3

REPORT INFORMATION
  Report Type: 
  Country: None (occurrence: None)
  Receive Date: 20080718
  Receipt Date: 20080708
  Transmission Date: 20090109
  Serious: Yes (Hospitalization)
  Sender: FDA-Public Use
  Company Number: 232646K07USA

PATIENT
  Age: 27 Year
  Sex: Female

DRUGS (10)
  1. REBIF [Suspect]
     Indication: MULTIPLE SCLEROSIS
     Dosage: 44 MCG, 3 IN 1 WEEKS, SUBCUTANEOUS
     Route: 058
     Dates: end: 20060427
  2. REBIF [Suspect]
     Indication: MULTIPLE SCLEROSIS
     Dosage: 44 MCG, 3 IN 1 WEEKS, SUBCUTANEOUS
     Route: 058
     Dates: start: 20070109, end: 20070201
  3. REBIF [Suspect]
     Indication: MULTIPLE SCLEROSIS
     Dosage: 44 MCG, 3 IN 1 WEEKS, SUBCUTANEOUS
     Route: 058
     Dates: start: 20070201, end: 20070319
  4. REBIF [Suspect]
     Indication: MULTIPLE SCLEROSIS
     Dosage: 44 MCG, 3 IN 1 WEEKS, SUBCUTANEOUS
     Route: 058
     Dates: start: 20070319
  5. WELLBUTRIN [Concomitant]
  6. BACLOFEN [Concomitant]
  7. DITROPAN [Concomitant]
  8. AMBIEN(ZOLIDEM TARTRATE) [Concomitant]
  9. DEPAKOTE [Concomitant]
  10. XANAX [Concomitant]

REACTIONS (2)
  - CONVULSION [None]
  - HEADACHE [None]
